FAERS Safety Report 10440442 (Version 2)
Quarter: 2014Q3

REPORT INFORMATION
  Report Type: Report from Study
  Country: CZ (occurrence: CZ)
  Receive Date: 20140909
  Receipt Date: 20140919
  Transmission Date: 20150326
  Serious: Yes (Hospitalization)
  Sender: FDA-Public Use
  Company Number: CZ-BIOGENIDEC-2014BI092471

PATIENT
  Age: 33 Year
  Sex: Female

DRUGS (3)
  1. LEVOCETIRIZIN [Concomitant]
  2. VIGANTOL [Concomitant]
  3. TYSABRI [Suspect]
     Active Substance: NATALIZUMAB
     Indication: MULTIPLE SCLEROSIS
     Route: 042
     Dates: start: 20100729, end: 20111130

REACTIONS (1)
  - Delayed delivery [Unknown]

NARRATIVE: CASE EVENT DATE: 20120808
